FAERS Safety Report 5148817-2 (Version None)
Quarter: 2006Q4

REPORT INFORMATION
  Report Type: 
  Country: None (occurrence: None)
  Receive Date: 20061107
  Receipt Date: 20061030
  Transmission Date: 20070319
  Serious: Yes (Other)
  Sender: FDA-Public Use
  Company Number: 230071

PATIENT
  Sex: 0
  Weight: 104.3 kg

DRUGS (7)
  1. XOLAIR [Suspect]
     Indication: ASTHMA
     Dosage: Q2W
     Dates: start: 20060101
  2. LISINOPRIL [Concomitant]
  3. ALBUTEROL                       (ALBUTEROL/ALBUTEROL SULFATE) [Concomitant]
  4. SINGULAIR [Concomitant]
  5. QVAR                          (BECALOMETHASONE DIPROPIONATE) [Concomitant]
  6. SEREVENT [Concomitant]
  7. CORTICOSTEROIDS                  (UNK INGREDIENTS) [Concomitant]

REACTIONS (6)
  - ARTHRALGIA [None]
  - BONE PAIN [None]
  - GAIT DISTURBANCE [None]
  - MYALGIA [None]
  - PAIN [None]
  - PERIPHERAL COLDNESS [None]
